FAERS Safety Report 5191523-9 (Version None)
Quarter: 2006Q4

REPORT INFORMATION
  Report Type: 
  Country: None (occurrence: None)
  Receive Date: 20061219
  Receipt Date: 20061219
  Transmission Date: 20070319
  Serious: Yes (Death)
  Sender: FDA-Public Use
  Company Number: None

PATIENT
  Age: 42 Year
  Sex: Male
  Weight: 75 kg

DRUGS (2)
  1. XIGRIS [Suspect]
     Indication: LUNG INJURY
     Dosage: IV DRIP
     Route: 041
  2. PLACEBO [Suspect]
     Indication: LUNG INJURY
     Dosage: IV DRIP
     Route: 041

REACTIONS (3)
  - LUNG INJURY [None]
  - PNEUMOCYSTIS JIROVECI PNEUMONIA [None]
  - SEPTIC SHOCK [None]
